FAERS Safety Report 4922066-2 (Version None)
Quarter: 2006Q1

REPORT INFORMATION
  Report Type: 
  Country: None (occurrence: None)
  Receive Date: 20060222
  Receipt Date: 20060222
  Transmission Date: 20060701
  Serious: Yes (Hospitalization)
  Sender: FDA-Public Use
  Company Number: None

PATIENT
  Age: 70 Year
  Sex: Female

DRUGS (4)
  1. DIOVAN [Suspect]
     Indication: HYPERTENSION
     Dosage: 80 MG PO DAILY
     Route: 048
  2. METFORMIN [Concomitant]
  3. TRILISATE [Concomitant]
  4. ASPIRIN [Concomitant]

REACTIONS (3)
  - ANGIONEUROTIC OEDEMA [None]
  - INTUBATION COMPLICATION [None]
  - OBSTRUCTIVE AIRWAYS DISORDER [None]
